FAERS Safety Report 9941556 (Version 1)
Quarter: 2014Q1

REPORT INFORMATION
  Report Type: Report from Study
  Country: US (occurrence: US)
  Receive Date: 20140303
  Receipt Date: 20140303
  Transmission Date: 20141002
  Serious: No
  Sender: FDA-Public Use
  Company Number: US-ABBVIE-13P-163-1039391-00

PATIENT
  Age: 52 Year
  Sex: Female

DRUGS (5)
  1. HUMIRA [Suspect]
     Indication: RHEUMATOID ARTHRITIS
     Dates: start: 20121222
  2. IBUPROFEN [Concomitant]
     Indication: PAIN
  3. BENADRYL [Concomitant]
     Indication: SEASONAL ALLERGY
  4. BUPROPION [Concomitant]
     Indication: DEPRESSION
  5. AMLODIPINE [Concomitant]
     Indication: RAYNAUD^S PHENOMENON

REACTIONS (1)
  - Injection site bruising [Not Recovered/Not Resolved]
